FAERS Safety Report 7419765-X (Version None)
Quarter: 2011Q2

REPORT INFORMATION
  Report Type: 
  Country: None (occurrence: None)
  Receive Date: 20110413
  Receipt Date: 20110413
  Transmission Date: 20111010
  Serious: Yes (Other)
  Sender: FDA-Public Use
  Company Number: None

PATIENT
  Sex: Female
  Weight: 63.5036 kg

DRUGS (2)
  1. CLONIDINE [Suspect]
     Indication: BLOOD PRESSURE
     Dosage: CLONIDINE 02 1 TIME FOR WEEK PATCH
     Route: 062
     Dates: start: 20110201, end: 20110301
  2. CLONIDINE [Suspect]

REACTIONS (3)
  - BURNING SENSATION [None]
  - PRURITUS [None]
  - SCAR [None]
